FAERS Safety Report 10083565 (Version 4)
Quarter: 2014Q3

REPORT INFORMATION
  Report Type: Spontaneous
  Country: US (occurrence: None)
  Receive Date: 20140415
  Receipt Date: 20140829
  Transmission Date: 20150326
  Serious: Yes (Life-Threatening, Hospitalization)
  Sender: FDA-Public Use
  Company Number: 152947

PATIENT
  Age: 55 Year
  Sex: Male
  Weight: 91 kg

DRUGS (1)
  1. LEUCOVORIN CALCIUM. [Suspect]
     Active Substance: LEUCOVORIN CALCIUM
     Indication: COLORECTAL CANCER METASTATIC
     Dosage: INFUSION, DAYI OF EACH 14VDAY CYCLE.
     Route: 042
     Dates: start: 20130409, end: 20130730

REACTIONS (8)
  - Mucosal inflammation [None]
  - Cough [None]
  - Diarrhoea [None]
  - Asthenia [None]
  - Bradycardia [None]
  - Febrile neutropenia [None]
  - Toxicity to various agents [None]
  - Blood bilirubin increased [None]

NARRATIVE: CASE EVENT DATE: 20130812
